FAERS Safety Report 7804334-X (Version None)
Quarter: 2011Q4

REPORT INFORMATION
  Report Type: 
  Country: None (occurrence: None)
  Receive Date: 20111010
  Receipt Date: 20110928
  Transmission Date: 20120403
  Serious: Yes (Life-Threatening, Hospitalization, Other)
  Sender: FDA-Public Use
  Company Number: JP-BAYER-2011-078120

PATIENT
  Age: 82 Year
  Sex: Male
  Weight: 35 kg

DRUGS (3)
  1. ADALAT [Suspect]
     Dosage: DAILY DOSE 20 MG
     Route: 048
  2. VITAMEDIN [Suspect]
     Dosage: DAILY DOSE 25 MG
     Route: 048
  3. NEXAVAR [Suspect]
     Indication: HEPATIC NEOPLASM MALIGNANT
     Dosage: 400 MG, BID
     Route: 048
     Dates: start: 20110811, end: 20110823

REACTIONS (10)
  - DISSEMINATED INTRAVASCULAR COAGULATION [None]
  - CYANOSIS [None]
  - HEPATIC FUNCTION ABNORMAL [None]
  - PYREXIA [None]
  - HYPERBILIRUBINAEMIA [None]
  - RASH [None]
  - THROMBOCYTOPENIA [None]
  - HYPERAMMONAEMIA [None]
  - HYPONATRAEMIA [None]
  - CIRCULATORY COLLAPSE [None]
